FAERS Safety Report 18036651 (Version 1)
Quarter: 2020Q3

REPORT INFORMATION
  Report Type: Report from Study
  Country: US (occurrence: US)
  Receive Date: 20200717
  Receipt Date: 20200717
  Transmission Date: 20201103
  Serious: Yes (Hospitalization)
  Sender: FDA-Public Use
  Company Number: NVSC2020US031285

PATIENT
  Age: 13 Year
  Sex: Female

DRUGS (5)
  1. METHOTREXATE SODIUM. [Suspect]
     Active Substance: METHOTREXATE SODIUM
     Indication: PRODUCT USED FOR UNKNOWN INDICATION
     Dosage: 15 MILLIGRAM (IM2 DAYS 1, 31)
     Route: 037
     Dates: start: 20191217, end: 20200131
  2. INC424A [Suspect]
     Active Substance: RUXOLITINIB
     Indication: ACUTE LYMPHOCYTIC LEUKAEMIA
     Dosage: 60 MG, QD, DAYS 1? 10, 21 ? 30
     Route: 048
     Dates: start: 20191217, end: 20200119
  3. VORICONAZOLE. [Concomitant]
     Active Substance: VORICONAZOLE
     Indication: ANTIFUNGAL PROPHYLAXIS
     Dosage: 200?400 MG PRN (AS NEEDED)
     Route: 042
     Dates: start: 20190413
  4. VINCRISTINE [Suspect]
     Active Substance: VINCRISTINE
     Indication: ACUTE LYMPHOCYTIC LEUKAEMIA
     Dosage: 1.85 MILLIGRAM (IM2 DAYS 1,11, 21, 31)
     Route: 042
     Dates: start: 20191217, end: 20200131
  5. PEGASPARGASE [Suspect]
     Active Substance: PEGASPARGASE
     Indication: ACUTE LYMPHOCYTIC LEUKAEMIA
     Dosage: 3075 INTERNATIONAL UNIT (IM2 DAYS 2, 22)
     Route: 042
     Dates: start: 20191218, end: 20200111

REACTIONS (4)
  - Bacteraemia [Recovered/Resolved]
  - Neutropenic colitis [Recovered/Resolved]
  - Encephalopathy [Recovered/Resolved]
  - Encephalitis fungal [Recovered/Resolved]

NARRATIVE: CASE EVENT DATE: 20200126
